FAERS Safety Report 15088293 (Version 5)
Quarter: 2018Q4

REPORT INFORMATION
  Report Type: Report from Study
  Country: FR (occurrence: FR)
  Receive Date: 20180629
  Receipt Date: 20181128
  Transmission Date: 20190204
  Serious: Yes (Hospitalization)
  Sender: FDA-Public Use
  Company Number: FR-ROCHE-2109657

PATIENT
  Age: 54 Year
  Sex: Female
  Weight: 103 kg

DRUGS (3)
  1. RIFADINE [Concomitant]
     Active Substance: RIFAMPIN
     Route: 048
     Dates: start: 20171019, end: 20180314
  2. TOCILIZUMAB. [Suspect]
     Active Substance: TOCILIZUMAB
     Indication: RHEUMATOID ARTHRITIS
     Route: 058
  3. BACTRIM [Concomitant]
     Active Substance: SULFAMETHOXAZOLE\TRIMETHOPRIM
     Route: 048
     Dates: start: 20171019, end: 20180314

REACTIONS (3)
  - Device related infection [Recovered/Resolved]
  - Product administration error [Unknown]
  - Hip arthroplasty [Recovered/Resolved]

NARRATIVE: CASE EVENT DATE: 20170927
